FAERS Safety Report 8413702-7 (Version None)
Quarter: 2012Q2

REPORT INFORMATION
  Report Type: 
  Country: None (occurrence: None)
  Receive Date: 20120605
  Receipt Date: 20120601
  Transmission Date: 20120825
  Serious: Yes (Death, Hospitalization, Other)
  Sender: FDA-Public Use
  Company Number: GB-B.I. PHARMACEUTICALS,INC./RIDGEFIELD-2012-UK-00345UK

PATIENT
  Age: 41 Year
  Sex: Male
  Weight: 62.5 kg

DRUGS (3)
  1. ANTOBIOTICS [Concomitant]
  2. LOTS OF MEDICATIONS [Concomitant]
  3. VIRAMUNE [Suspect]
     Indication: CD4 LYMPHOCYTES DECREASED
     Dosage: 400 MG
     Route: 048
     Dates: start: 20060915, end: 20120209

REACTIONS (13)
  - STEVENS-JOHNSON SYNDROME [None]
  - TACHYCARDIA [None]
  - LYMPHOMA [None]
  - PARANEOPLASTIC PEMPHIGUS [None]
  - ABDOMINAL DISTENSION [None]
  - PYREXIA [None]
  - PLANTAR FASCIITIS [None]
  - TREPONEMA TEST POSITIVE [None]
  - MOUTH ULCERATION [None]
  - VOMITING [None]
  - DIARRHOEA [None]
  - SWELLING FACE [None]
  - RASH GENERALISED [None]
